FAERS Safety Report 6654167-5 (Version None)
Quarter: 2010Q1

REPORT INFORMATION
  Report Type: 
  Country: None (occurrence: None)
  Receive Date: 20100326
  Receipt Date: 20100315
  Transmission Date: 20100710
  Serious: No
  Sender: FDA-Public Use
  Company Number: US-B.I. PHARMACEUTICALS,INC./RIDGEFIELD-2009-BP-14785BP

PATIENT
  Sex: Male

DRUGS (6)
  1. SPIRIVA [Suspect]
     Indication: CHRONIC OBSTRUCTIVE PULMONARY DISEASE
     Dosage: 18 MCG
     Route: 055
     Dates: start: 20080101, end: 20080101
  2. FLOMAX [Concomitant]
     Indication: PROSTATOMEGALY
     Dosage: 0.4 MG
  3. COMBIVENT [Concomitant]
     Dosage: 6 PUF
  4. FLOVENT [Concomitant]
     Dosage: 4 PUF
  5. 1 A DAY MEN'S VITAMINS (NO IRON) [Concomitant]
  6. VITAMIN D [Concomitant]

REACTIONS (1)
  - DYSPNOEA [None]
